FAERS Safety Report 7325007-6 (Version None)
Quarter: 2011Q1

REPORT INFORMATION
  Report Type: 
  Country: None (occurrence: None)
  Receive Date: 20110301
  Receipt Date: 20110222
  Transmission Date: 20110831
  Serious: Yes (Life-Threatening, Hospitalization)
  Sender: FDA-Public Use
  Company Number: DE-BRISTOL-MYERS SQUIBB COMPANY-15237894

PATIENT
  Age: 80 Year
  Sex: Male

DRUGS (11)
  1. LEVOTHYROXINE SODIUM [Concomitant]
  2. THIAZIDE [Concomitant]
  3. SIMVASTATIN [Concomitant]
  4. BISOPROLOL FUMARATE [Concomitant]
  5. IPRATROPIUM BROMIDE [Concomitant]
  6. APIXABAN [Suspect]
     Indication: THROMBOSIS PROPHYLAXIS
     Dosage: INTERRUPTED ON 12AUG10, RESTARTED ON 02SEP2010,STOPPED ON 10FEB2011
     Route: 048
     Dates: start: 20100107
  7. METFORMIN HCL [Concomitant]
  8. FENOTEROL [Concomitant]
  9. PLACEBO [Suspect]
     Indication: THROMBOSIS PROPHYLAXIS
     Dosage: INT ON 12AUG10;RESTARTED-02SEP2010, WITH APIXABAN:STOPPED-10FEB2011;WARFARIN:STOPPED-07FEB2011;
     Route: 048
     Dates: start: 20100107
  10. WARFARIN SODIUM [Suspect]
     Indication: THROMBOSIS PROPHYLAXIS
     Dosage: INTERRUPTED ON 12AUG10; RESTARTED 02SEP2010, STOPPED ON 07FEB2011
     Route: 048
     Dates: start: 20100107
  11. XIPAMIDE [Concomitant]

REACTIONS (1)
  - AORTIC ANEURYSM RUPTURE [None]
